FAERS Safety Report 16844095 (Version 5)
Quarter: 2020Q1

REPORT INFORMATION
  Report Type: Spontaneous
  Country: US (occurrence: US)
  Receive Date: 20190924
  Receipt Date: 20200318
  Transmission Date: 20200409
  Serious: Yes (Other)
  Sender: FDA-Public Use
  Company Number: US-PFIZER INC-2019120971

PATIENT
  Age: 44 Year
  Sex: Male
  Weight: 84.82 kg

DRUGS (12)
  1. RAPAMUNE [Suspect]
     Active Substance: SIROLIMUS
     Dosage: 3 MG, DAILY (THREE 1MG TABLETS BY MOUTH DAILY)
     Route: 048
  2. RAPAMUNE [Suspect]
     Active Substance: SIROLIMUS
     Dosage: UNK, 2X/DAY [3 TABLETS TAKEN BY MOUTH TWICE DAILY]
     Route: 048
     Dates: start: 20010302
  3. RAPAMUNE [Suspect]
     Active Substance: SIROLIMUS
     Dosage: 3 MG, DAILY
     Route: 048
     Dates: start: 20031231
  4. COREG [Concomitant]
     Active Substance: CARVEDILOL
     Dosage: UNK
  5. FLOMAX [MORNIFLUMATE] [Concomitant]
     Active Substance: MORNIFLUMATE
     Dosage: UNK
  6. DEMADEX [Concomitant]
     Active Substance: TORSEMIDE
     Dosage: UNK
  7. TRIGLIDE [Concomitant]
     Active Substance: FENOFIBRATE
     Dosage: UNK
  8. RAPAMUNE [Suspect]
     Active Substance: SIROLIMUS
     Indication: LIVER TRANSPLANT
     Dosage: UNK
     Dates: start: 20010301
  9. LYRICA [Concomitant]
     Active Substance: PREGABALIN
     Dosage: UNK
  10. RAPAMUNE [Suspect]
     Active Substance: SIROLIMUS
     Dosage: 1.5 MG, 2X/DAY (0.5MG 3 TABLETS BY MOUTH, TWICE A DAY)
     Route: 048
  11. MYFORTIC [Concomitant]
     Active Substance: MYCOPHENOLATE SODIUM
     Dosage: UNK
  12. BARACLUDE [Concomitant]
     Active Substance: ENTECAVIR
     Dosage: UNK

REACTIONS (8)
  - Pericardial effusion [Recovering/Resolving]
  - Limb discomfort [Unknown]
  - Product use in unapproved indication [Unknown]
  - Renal impairment [Unknown]
  - Arthropathy [Recovering/Resolving]
  - Off label use [Unknown]
  - Breath odour [Recovering/Resolving]
  - Ear infection [Unknown]

NARRATIVE: CASE EVENT DATE: 20010301
